FAERS Safety Report 11301104 (Version 1)
Quarter: 2015Q3

REPORT INFORMATION
  Report Type: Spontaneous
  Country: US (occurrence: US)
  Receive Date: 20150722
  Receipt Date: 20150722
  Transmission Date: 20151125
  Serious: No
  Sender: FDA-Public Use
  Company Number: US-ELI_LILLY_AND_COMPANY-US201401000557

PATIENT
  Age: 58 Year
  Sex: Male

DRUGS (4)
  1. HUMATROPE [Suspect]
     Active Substance: SOMATROPIN
     Indication: HYPOTHALAMO-PITUITARY DISORDER
     Dosage: 1.6 MG, QD
     Route: 065
     Dates: start: 2007
  2. HUMATROPE [Suspect]
     Active Substance: SOMATROPIN
     Dosage: 1.4 MG, QD
     Dates: start: 2008
  3. HUMATROPE [Suspect]
     Active Substance: SOMATROPIN
     Route: 065
  4. HUMATROPE [Suspect]
     Active Substance: SOMATROPIN
     Route: 065

REACTIONS (2)
  - Incorrect dose administered [Unknown]
  - Drug dose omission [Unknown]

NARRATIVE: CASE EVENT DATE: 201312
